FAERS Safety Report 13361423 (Version 1)
Quarter: 2017Q1

REPORT INFORMATION
  Report Type: Report from Study
  Country: None (occurrence: BR)
  Receive Date: 20170323
  Receipt Date: 20170323
  Transmission Date: 20170429
  Serious: Yes (Hospitalization, Other)
  Sender: FDA-Public Use
  Company Number: BR-ABBVIE-17P-020-1910267-00

PATIENT
  Age: 63 Year
  Sex: Male
  Weight: 82 kg

DRUGS (1)
  1. HUMIRA [Suspect]
     Active Substance: ADALIMUMAB
     Indication: ANKYLOSING SPONDYLITIS
     Route: 058
     Dates: start: 20140721, end: 20161215

REACTIONS (8)
  - Cough [Recovered/Resolved]
  - Bronchitis bacterial [Recovered/Resolved]
  - Liver disorder [Not Recovered/Not Resolved]
  - Nephrolithiasis [Recovered/Resolved]
  - Urine output decreased [Recovered/Resolved]
  - Renal failure [Recovered/Resolved]
  - Hepatic steatosis [Unknown]
  - Chikungunya virus infection [Unknown]

NARRATIVE: CASE EVENT DATE: 201612
